FAERS Safety Report 21712791 (Version 1)
Quarter: 2022Q4

REPORT INFORMATION
  Report Type: Spontaneous
  Country: US (occurrence: US)
  Receive Date: 20221212
  Receipt Date: 20221212
  Transmission Date: 20230112
  Serious: No
  Sender: FDA-Public Use
  Company Number: US-SA-SAC20221209000355

PATIENT
  Age: 72 Year
  Sex: Female

DRUGS (1)
  1. DUPIXENT [Suspect]
     Active Substance: DUPILUMAB
     Dosage: 300MG, FREQUENCY-OTHER
     Route: 058
     Dates: start: 20220910, end: 20221126

REACTIONS (1)
  - Middle insomnia [Unknown]

NARRATIVE: CASE EVENT DATE: 20220101
